FAERS Safety Report 25199175 (Version 1)
Quarter: 2025Q2

REPORT INFORMATION
  Report Type: Spontaneous
  Country: US (occurrence: US)
  Receive Date: 20250415
  Receipt Date: 20250415
  Transmission Date: 20250716
  Serious: No
  Sender: AMGEN
  Company Number: US-AMGEN-USASP2025073306

PATIENT
  Sex: Female

DRUGS (1)
  1. TEPEZZA [Suspect]
     Active Substance: TEPROTUMUMAB-TRBW
     Indication: Endocrine ophthalmopathy
     Route: 065
     Dates: start: 20250220, end: 202504

REACTIONS (3)
  - Altered visual depth perception [Not Recovered/Not Resolved]
  - Diplopia [Not Recovered/Not Resolved]
  - Eye pruritus [Not Recovered/Not Resolved]
